FAERS Safety Report 10010634 (Version 1)
Quarter: 2014Q1

REPORT INFORMATION
  Report Type: Report from Study
  Country: US (occurrence: US)
  Receive Date: 20140314
  Receipt Date: 20140314
  Transmission Date: 20141002
  Serious: Yes (Other)
  Sender: FDA-Public Use
  Company Number: US-ROCHE-1359093

PATIENT
  Age: 55 Year
  Sex: Female
  Weight: 96.7 kg

DRUGS (3)
  1. HERCEPTIN [Suspect]
     Indication: HER-2 POSITIVE BREAST CANCER
     Route: 042
     Dates: start: 20130228, end: 20140113
  2. TAXOTERE [Concomitant]
     Indication: HER-2 POSITIVE BREAST CANCER
     Dosage: STOP DATE: 6 MONTHS LATER
     Route: 042
     Dates: start: 20130228
  3. CARBOPLATIN [Concomitant]
     Indication: HER-2 POSITIVE BREAST CANCER
     Dosage: STOPE DATE: 6 MONTHS LATER
     Route: 042
     Dates: start: 20130228

REACTIONS (4)
  - Neoplasm [Recovered/Resolved]
  - Pain in extremity [Unknown]
  - Hypoaesthesia [Unknown]
  - Carpal tunnel decompression [Unknown]
